FAERS Safety Report 9783249 (Version 2)
Quarter: 2014Q1

REPORT INFORMATION
  Report Type: Spontaneous
  Country: US (occurrence: US)
  Receive Date: 20131226
  Receipt Date: 20140131
  Transmission Date: 20141002
  Serious: Yes (Other)
  Sender: FDA-Public Use
  Company Number: US-PFIZER INC-2013368194

PATIENT
  Age: 74 Year
  Sex: Male
  Weight: 103.4 kg

DRUGS (10)
  1. LYRICA [Suspect]
     Indication: DIABETIC NEUROPATHY
     Dosage: 75 MG, 2X/DAY
     Route: 048
     Dates: end: 2013
  2. LYRICA [Suspect]
     Indication: NEUROPATHY PERIPHERAL
     Dosage: 75 MG, 2X/DAY
     Route: 048
     Dates: start: 20131220
  3. METOPROLOL [Concomitant]
     Dosage: UNK
  4. BENICAR [Concomitant]
     Dosage: UNK
  5. VITAMIN C [Concomitant]
     Dosage: UNK
  6. VITAMIN D [Concomitant]
     Dosage: UNK
  7. VITAMIN B6 [Concomitant]
     Dosage: UNK
  8. CENTRUM SILVER [Concomitant]
     Dosage: UNK
  9. FISH OIL [Concomitant]
     Dosage: UNK
  10. METFORMIN [Concomitant]
     Dosage: UNK

REACTIONS (5)
  - Suicidal ideation [Recovered/Resolved]
  - Panic reaction [Recovered/Resolved]
  - Inflammation [Recovered/Resolved]
  - Feeling abnormal [Recovered/Resolved]
  - Blood glucose increased [Recovered/Resolved]
